FAERS Safety Report 8535914-4 (Version None)
Quarter: 2012Q3

REPORT INFORMATION
  Report Type: 
  Country: None (occurrence: None)
  Receive Date: 20120725
  Receipt Date: 20120718
  Transmission Date: 20120928
  Serious: Yes (Hospitalization, Other)
  Sender: FDA-Public Use
  Company Number: PHHY2011CA42709

PATIENT
  Sex: Female

DRUGS (11)
  1. GABAPENTIN [Concomitant]
     Dosage: 400 MG, Q8H
  2. NEXIUM [Concomitant]
     Dosage: 40 MG, UNK
  3. ZOLEDRONOC ACID [Suspect]
     Indication: OSTEOPOROSIS
     Dosage: 5 MG/100 ML
     Route: 042
     Dates: start: 20100614
  4. PRAVASTATIN [Concomitant]
     Dosage: 20 MG, HS
  5. DOCUSATE [Concomitant]
     Dosage: 100 MG, 2 CAP BID TO QID
  6. NOLVADEX [Concomitant]
     Dosage: 20 MG, UNK
  7. AMITRIPTYLINE HYDROCHLORIDE [Concomitant]
     Dosage: 10 MG, HS
  8. COZAAR [Concomitant]
     Dosage: 100 MG, AM
  9. VITAMIN D [Concomitant]
     Dosage: 10000 IU,
  10. ELAVIL [Concomitant]
     Dosage: 10 MG, UNK
  11. ZOLEDRONOC ACID [Suspect]
     Dosage: 5 MG/100 ML
     Route: 042
     Dates: start: 20110620

REACTIONS (3)
  - DEVICE RELATED INFECTION [None]
  - ABDOMINAL INFECTION [None]
  - BREAST CANCER [None]
